FAERS Safety Report 17582984 (Version 2)
Quarter: 2020Q2

REPORT INFORMATION
  Report Type: Spontaneous
  Country: US (occurrence: US)
  Receive Date: 20200325
  Receipt Date: 20200624
  Transmission Date: 20200713
  Serious: Yes (Hospitalization)
  Sender: FDA-Public Use
  Company Number: US-ASTELLAS-2020US005453

PATIENT
  Age: 78 Year
  Sex: Male

DRUGS (2)
  1. PADCEV [Suspect]
     Active Substance: ENFORTUMAB VEDOTIN-EJFV
     Dosage: 1.25 MG/KG, CYCLIC (D1, D8, D15 OF 28 DAY CYCLE)
     Route: 042
     Dates: start: 20200213
  2. PADCEV [Suspect]
     Active Substance: ENFORTUMAB VEDOTIN-EJFV
     Indication: BLADDER CANCER
     Dosage: 1.25 MG/KG, CYCLIC (D1, D8, D15 OF 28 DAY CYCLE)
     Route: 042
     Dates: start: 20200123, end: 20200131

REACTIONS (2)
  - Liver function test increased [Recovered/Resolved]
  - Asthenia [Recovered/Resolved]

NARRATIVE: CASE EVENT DATE: 20200206
